FAERS Safety Report 15030241 (Version 2)
Quarter: 2018Q2

REPORT INFORMATION
  Report Type: Spontaneous
  Country: JP (occurrence: JP)
  Receive Date: 20180619
  Receipt Date: 20180622
  Transmission Date: 20180711
  Serious: Yes (Hospitalization)
  Sender: FDA-Public Use
  Company Number: JP-PFIZER INC-2018235937

PATIENT
  Age: 53 Year
  Sex: Male

DRUGS (11)
  1. CARBOCYSTEINE [Concomitant]
     Active Substance: CARBOCYSTEINE
     Dosage: 1500 MG, DAILY
  2. CODEINE PHOSPHATE [Concomitant]
     Active Substance: CODEINE PHOSPHATE
     Dosage: UNK
  3. TRAMCET [Interacting]
     Active Substance: ACETAMINOPHEN\TRAMADOL
     Indication: PAIN
     Dosage: 4 TABLETS, UNK
     Route: 048
     Dates: start: 201801, end: 20180607
  4. REBAMIPIDE [Concomitant]
     Active Substance: REBAMIPIDE
     Dosage: 3 TABLETS, UNK
  5. METHYCOBAL [Concomitant]
     Active Substance: METHYLCOBALAMIN
     Dosage: 1500 MG, DAILY
  6. SPIRONOLACTONE. [Concomitant]
     Active Substance: SPIRONOLACTONE
     Dosage: 125 MG, DAILY
  7. VFEND [Suspect]
     Active Substance: VORICONAZOLE
     Indication: BRONCHOPULMONARY ASPERGILLOSIS
     Dosage: 200 MG, DAILY
     Route: 048
     Dates: start: 20171014, end: 20180607
  8. AMBROXOL [Concomitant]
     Active Substance: AMBROXOL
     Dosage: 45 MG, DAILY
  9. ERYTHROSINE [Concomitant]
     Active Substance: FD+C RED NO. 3
     Indication: PSEUDOMONAS INFECTION
     Dosage: 400 MG, DAILY
  10. RABEPRAZOLE [Concomitant]
     Active Substance: RABEPRAZOLE
     Dosage: 1 TABLET, UNK
  11. DIACORT [Concomitant]
     Active Substance: DIFLORASONE DIACETATE
     Dosage: 60 MG, DAILY

REACTIONS (5)
  - Malaise [Unknown]
  - Drug-induced liver injury [Unknown]
  - Transaminases increased [Recovered/Resolved]
  - Drug interaction [Unknown]
  - Hepatic function abnormal [Recovered/Resolved]

NARRATIVE: CASE EVENT DATE: 20180607
